FAERS Safety Report 9583302 (Version 1)
Quarter: 2013Q4

REPORT INFORMATION
  Report Type: Spontaneous
  Country: US (occurrence: US)
  Receive Date: 20131002
  Receipt Date: 20131002
  Transmission Date: 20140711
  Serious: Yes (Other)
  Sender: FDA-Public Use
  Company Number: US-AMGEN-USASP2013046361

PATIENT
  Age: 42 Year
  Sex: Female
  Weight: 56.69 kg

DRUGS (18)
  1. ENBREL [Suspect]
     Indication: PRODUCT USED FOR UNKNOWN INDICATION
     Dosage: 50 MG, QWK
     Route: 058
  2. CALTRATE +D                        /01483701/ [Concomitant]
     Dosage: 600-800 UNK
  3. PROTONIX [Concomitant]
     Dosage: UNK
  4. RESTASIS [Concomitant]
     Dosage: 0.05 % UNK
  5. PLAQUENIL                          /00072602/ [Concomitant]
     Dosage: 200 MG, UNK
  6. PREMARIN [Concomitant]
     Dosage: 0.3 MG, UNK
  7. MIRCETTE [Concomitant]
     Dosage: UNK 28 DAY
  8. CARAFATE [Concomitant]
     Dosage: 1 G, UNK
  9. GABAPENTIN [Concomitant]
     Dosage: 100 MG, UNK
  10. PROMETHAZINE [Concomitant]
     Dosage: 12.5 MG, UNK
  11. FLONASE [Concomitant]
     Dosage: 0.05 % UNK
  12. SUMATRIPTAN [Concomitant]
     Dosage: 6 MG / 0.5, UNK
  13. METHOTREXATE [Concomitant]
     Dosage: 1 G / 40 ML, UNK
  14. MULTIVITAMINS, PLAIN [Concomitant]
     Dosage: UNK
  15. FOLIC ACID [Concomitant]
     Dosage: UNK
  16. PENTASA [Concomitant]
     Dosage: 500 MG, UNK
  17. SALAGEN [Concomitant]
     Dosage: 5 MG, UNK
  18. IBUPROFEN [Concomitant]
     Dosage: 10 %, UNK

REACTIONS (5)
  - Crohn^s disease [Unknown]
  - Abdominal pain [Unknown]
  - Vomiting [Unknown]
  - Colitis [Unknown]
  - Throat tightness [Unknown]
